FAERS Safety Report 9504561 (Version 1)
Quarter: 2013Q3

REPORT INFORMATION
  Report Type: Spontaneous
  Country: US (occurrence: US)
  Receive Date: 20130906
  Receipt Date: 20130906
  Transmission Date: 20140515
  Serious: Yes (Hospitalization)
  Sender: FDA-Public Use
  Company Number: US-ROXANE LABORATORIES, INC.-2013-RO-01462RO

PATIENT
  Age: 67 Year
  Sex: Male

DRUGS (7)
  1. DIGOXIN [Suspect]
  2. IBUPROFEN [Suspect]
     Indication: GOUT
  3. ATENOLOL [Suspect]
  4. HYDROXYZINE [Suspect]
  5. TAMSULOSIN [Suspect]
  6. ASPIRIN [Suspect]
  7. ALLOPURINOL [Suspect]

REACTIONS (2)
  - Toxicity to various agents [Recovered/Resolved]
  - Renal failure chronic [Unknown]
